FAERS Safety Report 8556708-X (Version None)
Quarter: 2012Q3

REPORT INFORMATION
  Report Type: 
  Country: None (occurrence: None)
  Receive Date: 20120801
  Receipt Date: 20120724
  Transmission Date: 20120928
  Serious: Yes (Other)
  Sender: FDA-Public Use
  Company Number: FR-ASTELLAS-2012EU005258

PATIENT
  Sex: Female

DRUGS (8)
  1. PROGRAF [Suspect]
     Indication: PROPHYLAXIS AGAINST TRANSPLANT REJECTION
     Dosage: 2.5 MG, BID
     Route: 048
     Dates: start: 20050720
  2. AZATHIOPRINE [Concomitant]
     Indication: PROPHYLAXIS AGAINST TRANSPLANT REJECTION
     Dosage: 50 MG, BID
     Route: 048
     Dates: start: 20050802
  3. PRAVASTATIN [Concomitant]
     Indication: DYSLIPIDAEMIA
     Dosage: 20 MG, UID/QD
     Route: 048
     Dates: start: 20100512
  4. VALACYCLOVIR HYDROCHLORIDE [Concomitant]
     Indication: PROPHYLAXIS
     Dosage: 250 MG, UID/QD
     Route: 048
     Dates: start: 20070104
  5. CINACALCET HYDROCHLORIDE [Concomitant]
     Indication: HYPERPARATHYROIDISM
     Dosage: 30 MG, UID/QD
     Route: 048
     Dates: start: 20051030
  6. BISOPROLOL FUMARATE [Concomitant]
     Indication: HYPERTENSION
     Dosage: 10 MG, UID/QD
     Route: 048
     Dates: start: 20050805
  7. LEVOTHYROXINE SODIUM [Concomitant]
     Indication: HYPOTHYROIDISM
     Dosage: 125 UG, UID/QD
     Route: 048
     Dates: start: 20050805
  8. PROGRAF [Suspect]
     Dosage: 6 MG, UNKNOWN/D
     Route: 048

REACTIONS (7)
  - VOMITING [None]
  - OESOPHAGEAL STENOSIS [None]
  - GASTRIC ULCER [None]
  - DIZZINESS [None]
  - CYSTITIS [None]
  - ALOPECIA [None]
  - SKIN DISORDER [None]
